FAERS Safety Report 19483906 (Version 2)
Quarter: 2021Q4

REPORT INFORMATION
  Report Type: Spontaneous
  Country: FR (occurrence: FR)
  Receive Date: 20210701
  Receipt Date: 20211008
  Transmission Date: 20220303
  Serious: Yes (Hospitalization, Other)
  Sender: FDA-Public Use
  Company Number: None

PATIENT
  Age: 49 Year
  Sex: Female
  Weight: 77 kg

DRUGS (3)
  1. AMOXICILLIN [Suspect]
     Active Substance: AMOXICILLIN
     Indication: Antibiotic prophylaxis
     Dosage: 2 G, QD
     Route: 048
     Dates: start: 20210603, end: 20210609
  2. ATOVAQUONE [Suspect]
     Active Substance: ATOVAQUONE
     Indication: Parasitic infection prophylaxis
     Dosage: 750 MG, QOD
     Route: 048
     Dates: start: 20210603, end: 20210607
  3. AMITRIPTYLINE HYDROCHLORIDE [Suspect]
     Active Substance: AMITRIPTYLINE HYDROCHLORIDE
     Indication: Gait disturbance
     Dosage: 7 MG, QD
     Route: 048
     Dates: start: 20210601, end: 20210617

REACTIONS (4)
  - Mixed liver injury [Recovered/Resolved]
  - Eosinophilia [Recovered/Resolved]
  - Pruritus [Recovered/Resolved]
  - Rash [Recovered/Resolved]

NARRATIVE: CASE EVENT DATE: 20210601
